FAERS Safety Report 6834963-1 (Version None)
Quarter: 2010Q3

REPORT INFORMATION
  Report Type: 
  Country: None (occurrence: None)
  Receive Date: 20100713
  Receipt Date: 20100708
  Transmission Date: 20110219
  Serious: Yes (Other)
  Sender: FDA-Public Use
  Company Number: US-ASTRAZENECA-2007UW12844

PATIENT
  Age: 46 Year
  Sex: Female
  Weight: 44 kg

DRUGS (24)
  1. SEROQUEL [Suspect]
     Indication: SLEEP DISORDER
     Route: 048
     Dates: start: 20030101
  2. SEROQUEL [Suspect]
     Indication: BIPOLAR DISORDER
     Route: 048
     Dates: start: 20030101
  3. SEROQUEL [Suspect]
     Indication: DEPRESSION
     Route: 048
     Dates: start: 20030101
  4. SEROQUEL [Suspect]
     Dosage: 100-300MG
     Route: 048
     Dates: start: 20040319
  5. SEROQUEL [Suspect]
     Dosage: 100-300MG
     Route: 048
     Dates: start: 20040319
  6. SEROQUEL [Suspect]
     Dosage: 100-300MG
     Route: 048
     Dates: start: 20040319
  7. SEROQUEL [Suspect]
     Dosage: 50-500 MG
     Route: 048
     Dates: start: 20050401, end: 20060301
  8. SEROQUEL [Suspect]
     Dosage: 50-500 MG
     Route: 048
     Dates: start: 20050401, end: 20060301
  9. SEROQUEL [Suspect]
     Dosage: 50-500 MG
     Route: 048
     Dates: start: 20050401, end: 20060301
  10. SEROQUEL [Suspect]
     Dosage: 50-500 MG
     Route: 048
     Dates: start: 20060601
  11. SEROQUEL [Suspect]
     Dosage: 50-500 MG
     Route: 048
     Dates: start: 20060601
  12. SEROQUEL [Suspect]
     Dosage: 50-500 MG
     Route: 048
     Dates: start: 20060601
  13. TRAZODONE HYDROCHLORIDE [Concomitant]
     Indication: SLEEP DISORDER
     Route: 048
     Dates: start: 20030101
  14. GEODON [Concomitant]
     Dates: start: 20080101
  15. CELEXA [Concomitant]
     Dates: start: 20090101
  16. CELEXA [Concomitant]
  17. LYRICA [Concomitant]
  18. OXYCONTIN [Concomitant]
  19. CELEBREX [Concomitant]
  20. LORTAB [Concomitant]
     Dosage: 10/500 MG QID/PRN
  21. PAXIL [Concomitant]
     Indication: DEPRESSION
     Dates: start: 20030101
  22. FEMARA [Concomitant]
     Indication: CHEMOTHERAPY
     Dates: start: 20030101
  23. IMITREX [Concomitant]
     Indication: MIGRAINE
     Dosage: 2 TO 4 DAILY 50 MG
     Dates: start: 20040610
  24. IBUPROFEN [Concomitant]
     Indication: RADIATION INJURY
     Dosage: 9 TIMES 8 DAY

REACTIONS (6)
  - BREAST CANCER [None]
  - CARDIAC DISORDER [None]
  - CARDIAC MURMUR [None]
  - NEOPLASM MALIGNANT [None]
  - PANCREATITIS ACUTE [None]
  - PANCREATITIS CHRONIC [None]
